FAERS Safety Report 14210239 (Version 1)
Quarter: 2017Q4

REPORT INFORMATION
  Report Type: Spontaneous
  Country: KR (occurrence: KR)
  Receive Date: 20171121
  Receipt Date: 20171121
  Transmission Date: 20180321
  Serious: Yes (Hospitalization, Other)
  Sender: FDA-Public Use
  Company Number: KR-JNJFOC-20171123569

PATIENT

DRUGS (3)
  1. DOCETAXEL. [Suspect]
     Active Substance: DOCETAXEL
     Indication: BREAST CANCER
     Dosage: TAC REGIMEN
     Route: 065
  2. CYCLOPHOSPHAMIDE. [Suspect]
     Active Substance: CYCLOPHOSPHAMIDE
     Indication: BREAST CANCER
     Dosage: TAC REGIMEN
     Route: 065
  3. DOXORUBICIN HYDROCHLORIDE. [Suspect]
     Active Substance: DOXORUBICIN HYDROCHLORIDE
     Indication: BREAST CANCER
     Dosage: TAC REGIMEN
     Route: 065

REACTIONS (25)
  - Neutropenia [Recovered/Resolved]
  - Thrombocytopenia [Unknown]
  - Rash [Unknown]
  - Aspartate aminotransferase increased [Unknown]
  - Dizziness [Unknown]
  - Febrile neutropenia [Unknown]
  - Pneumonitis [Unknown]
  - Anaemia [Unknown]
  - Generalised oedema [Unknown]
  - Neuropathy peripheral [Unknown]
  - Constipation [Unknown]
  - Nausea [Unknown]
  - Infection [Unknown]
  - Alopecia [Unknown]
  - Diarrhoea [Unknown]
  - Stomatitis [Unknown]
  - Myalgia [Unknown]
  - Asthenia [Unknown]
  - Headache [Unknown]
  - Alanine aminotransferase increased [Unknown]
  - Vomiting [Unknown]
  - Abdominal discomfort [Unknown]
  - Decreased appetite [Unknown]
  - Pyrexia [Unknown]
  - Weight decreased [Unknown]
